FAERS Safety Report 10172895 (Version 3)
Quarter: 2015Q1

REPORT INFORMATION
  Report Type: Report from Study
  Country: TR (occurrence: TR)
  Receive Date: 20140515
  Receipt Date: 20150115
  Transmission Date: 20150720
  Serious: Yes (Other)
  Sender: FDA-Public Use
  Company Number: TR-ROCHE-1401361

PATIENT
  Age: 54 Year
  Sex: Male

DRUGS (4)
  1. ALTEPLASE [Suspect]
     Active Substance: ALTEPLASE
     Indication: ISCHAEMIC STROKE
     Route: 013
  2. MIDAZOLAM [Concomitant]
     Active Substance: MIDAZOLAM\MIDAZOLAM HYDROCHLORIDE
     Indication: ANALGESIC THERAPY
     Route: 042
  3. HEPARIN [Suspect]
     Active Substance: HEPARIN SODIUM
     Indication: PRODUCT USED FOR UNKNOWN INDICATION
     Dosage: 5000 U
     Route: 042
  4. PROPOFOL. [Concomitant]
     Active Substance: PROPOFOL
     Indication: ANALGESIC THERAPY
     Route: 042

REACTIONS (2)
  - Carotid artery dissection [Unknown]
  - Haemorrhage [Unknown]
